FAERS Safety Report 25245701 (Version 2)
Quarter: 2025Q2

REPORT INFORMATION
  Report Type: Report from Study
  Country: AT (occurrence: AT)
  Receive Date: 20250428
  Receipt Date: 20250430
  Transmission Date: 20250716
  Serious: Yes (Death)
  Sender: DAIICHI
  Company Number: AT-DSJP-DS-2025-138437-AT

PATIENT
  Age: 65 Year
  Sex: Male
  Weight: 67 kg

DRUGS (7)
  1. DATOPOTAMAB DERUXTECAN [Suspect]
     Active Substance: DATOPOTAMAB DERUXTECAN
     Indication: Non-small cell lung cancer metastatic
     Dosage: 6 MG/KG, ONCE EVERY 3 WK
     Route: 042
     Dates: start: 20241126, end: 20241126
  2. DATOPOTAMAB DERUXTECAN [Suspect]
     Active Substance: DATOPOTAMAB DERUXTECAN
     Dosage: 6 MG/KG, ONCE EVERY 3 WK
     Route: 042
     Dates: start: 20250113, end: 20250113
  3. CALCIDURAN [ASCORBIC ACID;CALCIUM PHOSPHATE;COLECALCIFEROL] [Concomitant]
     Indication: Metastases to bone
     Dosage: 500MG/800IE, BID
     Route: 048
     Dates: start: 20240717, end: 20250210
  4. AMLODIPINE [Concomitant]
     Active Substance: AMLODIPINE BESYLATE
     Indication: Hypertonia
     Dosage: 10 MG, QD
     Route: 048
     Dates: start: 20240711, end: 20250210
  5. TAMSULOSIN [Concomitant]
     Active Substance: TAMSULOSIN
     Indication: Benign prostatic hyperplasia
     Dosage: 0.4 MG, QD
     Route: 048
     Dates: start: 20240615, end: 20250210
  6. MUNDIDOL [Concomitant]
     Indication: Pain
     Dosage: 30 MG, BID
     Route: 048
     Dates: start: 20240615, end: 20250210
  7. MORPHINE SULFATE [Concomitant]
     Active Substance: MORPHINE SULFATE
     Indication: Pain
     Route: 048
     Dates: start: 20240615, end: 20250210

REACTIONS (1)
  - Neoplasm progression [Fatal]

NARRATIVE: CASE EVENT DATE: 20250210
